FAERS Safety Report 7793499-4 (Version None)
Quarter: 2011Q4

REPORT INFORMATION
  Report Type: 
  Country: None (occurrence: None)
  Receive Date: 20111003
  Receipt Date: 20110923
  Transmission Date: 20120403
  Serious: Yes (Hospitalization)
  Sender: FDA-Public Use
  Company Number: FR-PFIZER INC-2001083703FR

PATIENT
  Age: 58 Year
  Sex: Female
  Weight: 60 kg

DRUGS (9)
  1. MOTILIUM-M [Concomitant]
     Dosage: UNK
     Route: 065
     Dates: start: 20011012
  2. FLUCONAZOLE [Suspect]
     Dosage: 50 MG, BID
     Route: 048
     Dates: start: 20011012
  3. DEBRIDAT [Suspect]
     Dosage: 600 MG, 1X/DAY
     Route: 048
     Dates: start: 20011012
  4. PACLITAXEL [Suspect]
     Dosage: 140 MG, QD
     Dates: start: 20011031, end: 20011031
  5. FUROSEMIDE [Suspect]
     Dosage: 20 MG, QD
     Route: 048
     Dates: start: 20011012
  6. CERNEVIT-12 [Concomitant]
     Route: 065
  7. FERROUS GLUCONATE [Concomitant]
     Route: 065
  8. OMEPRAZOLE [Suspect]
     Dosage: 20 MG, QD
     Route: 048
     Dates: start: 20011012
  9. MEDROL [Suspect]
     Dosage: 16 MG, TID
     Route: 048
     Dates: start: 20011012

REACTIONS (1)
  - SKIN EXFOLIATION [None]
